FAERS Safety Report 9025461 (Version 7)
Quarter: 2014Q1

REPORT INFORMATION
  Report Type: Report from Study
  Country: CA (occurrence: CA)
  Receive Date: 20130122
  Receipt Date: 20140310
  Transmission Date: 20141002
  Serious: No
  Sender: FDA-Public Use
  Company Number: PHHY2012CA123559

PATIENT
  Sex: Male

DRUGS (4)
  1. TASIGNA [Suspect]
     Indication: CHRONIC MYELOID LEUKAEMIA
     Dosage: 400 MG, BID
     Route: 048
     Dates: start: 20121012
  2. TASIGNA [Suspect]
     Dosage: 200 MG, BID
     Route: 048
  3. TASIGNA [Suspect]
     Dosage: 400 MG, BID
     Route: 048
  4. SYNTHROID [Concomitant]

REACTIONS (16)
  - Depression [Unknown]
  - Hair disorder [Recovering/Resolving]
  - Hair growth abnormal [Unknown]
  - Platelet disorder [Unknown]
  - Inflammation [Unknown]
  - Scab [Unknown]
  - Dental caries [Unknown]
  - Rhinorrhoea [Unknown]
  - Fatigue [Unknown]
  - Rash [Not Recovered/Not Resolved]
  - Pruritus [Unknown]
  - Muscle spasms [Not Recovered/Not Resolved]
  - Erythema [Unknown]
  - Palpitations [Unknown]
  - Hyperhidrosis [Unknown]
  - Epistaxis [Unknown]
